FAERS Safety Report 8839955 (Version 1)
Quarter: 2012Q4

REPORT INFORMATION
  Report Type: Report from Study
  Country: US (occurrence: US)
  Receive Date: 20121015
  Receipt Date: 20121015
  Transmission Date: 20130627
  Serious: Yes (Hospitalization)
  Sender: FDA-Public Use
  Company Number: US-ABBOTT-12P-163-0992491-00

PATIENT
  Sex: Female

DRUGS (3)
  1. VICODIN [Suspect]
     Indication: PAIN
  2. COPAXONE [Suspect]
     Indication: MULTIPLE SCLEROSIS
     Dates: start: 20100927
  3. BACLOFEN [Concomitant]
     Indication: PRODUCT USED FOR UNKNOWN INDICATION

REACTIONS (3)
  - Depression [Recovered/Resolved]
  - Overdose [Recovered/Resolved]
  - Pain [Recovered/Resolved]
